FAERS Safety Report 16878038 (Version 1)
Quarter: 2019Q4

REPORT INFORMATION
  Report Type: Report from Study
  Country: US (occurrence: US)
  Receive Date: 20191002
  Receipt Date: 20191002
  Transmission Date: 20200122
  Serious: Yes (Other)
  Sender: FDA-Public Use
  Company Number: US-TAIHO ONCOLOGY  INC-EU-2019-03199

PATIENT
  Age: 46 Year
  Sex: Female

DRUGS (1)
  1. LONSURF [Suspect]
     Active Substance: TIPIRACIL HYDROCHLORIDE\TRIFLURIDINE
     Indication: COLON CANCER
     Dosage: CURRENT CYCLE 1. DAYS 1-5 AND 8-12 OF A 28 DAY CYCLE.
     Route: 048
     Dates: start: 20190805

REACTIONS (2)
  - Pain [Unknown]
  - Transfusion [Unknown]

NARRATIVE: CASE EVENT DATE: 2019
